FAERS Safety Report 25459632 (Version 1)
Quarter: 2025Q2

REPORT INFORMATION
  Report Type: Spontaneous
  Country: CN (occurrence: CN)
  Receive Date: 20250620
  Receipt Date: 20250620
  Transmission Date: 20250716
  Serious: Yes (Life-Threatening)
  Sender: DR REDDYS
  Company Number: None

PATIENT
  Age: 84 Year
  Sex: Female
  Weight: 37 kg

DRUGS (5)
  1. OLANZAPINE [Suspect]
     Active Substance: OLANZAPINE
     Indication: Mania
     Dosage: 5MG,QD
     Route: 048
     Dates: start: 20250607, end: 20250607
  2. ESTAZOLAM [Suspect]
     Active Substance: ESTAZOLAM
     Indication: Mania
     Dosage: 1MG,QD
     Route: 048
     Dates: start: 20250607, end: 20250607
  3. CEFTIZOXIME SODIUM [Concomitant]
     Active Substance: CEFTIZOXIME SODIUM
     Indication: Infection prophylaxis
     Dosage: 2G,BID
     Route: 041
     Dates: start: 20250605, end: 20250608
  4. ILAPRAZOLE [Concomitant]
     Active Substance: ILAPRAZOLE
     Indication: Stress ulcer
     Dosage: 10MG,QD
     Route: 041
     Dates: start: 20250605, end: 20250608
  5. NADROPARIN CALCIUM [Concomitant]
     Active Substance: NADROPARIN CALCIUM
     Indication: Thrombosis prophylaxis
     Dosage: 0.4 ML, QD
     Route: 058
     Dates: start: 20250605, end: 20250608

REACTIONS (2)
  - Somnolence [Recovering/Resolving]
  - Oxygen saturation decreased [Recovering/Resolving]

NARRATIVE: CASE EVENT DATE: 20250608
